FAERS Safety Report 24678475 (Version 2)
Quarter: 2024Q4

REPORT INFORMATION
  Report Type: Report from Study
  Country: JP (occurrence: JP)
  Receive Date: 20241129
  Receipt Date: 20241212
  Transmission Date: 20250114
  Serious: Yes (Other)
  Sender: Haleon PLC
  Company Number: JP-HALEON-2201222

PATIENT
  Age: 49 Year
  Sex: Male
  Weight: 72.8 kg

DRUGS (1)
  1. ALLI [Suspect]
     Active Substance: ORLISTAT
     Indication: Product used for unknown indication
     Dosage: TIMING OF TAKING: DURING MEALS TO WITHIN 1 HOUR AFTER MEALS
     Route: 048
     Dates: start: 20240412, end: 20240510

REACTIONS (6)
  - Haematochezia [Unknown]
  - Vitamin K decreased [Unknown]
  - Vitamin E decreased [Unknown]
  - Hypovitaminosis [Unknown]
  - Gastrointestinal haemorrhage [Unknown]
  - Haemorrhoids [Unknown]

NARRATIVE: CASE EVENT DATE: 20240507
